FAERS Safety Report 10778984 (Version 1)
Quarter: 2015Q1

REPORT INFORMATION
  Report Type: Spontaneous
  Country: US (occurrence: None)
  Receive Date: 20150206
  Receipt Date: 20150206
  Transmission Date: 20150721
  Serious: Yes (Other)
  Sender: FDA-Public Use
  Company Number: COM-002882

PATIENT
  Age: 79 Year
  Sex: Female
  Weight: 77.11 kg

DRUGS (4)
  1. MUCUS RELIEF SEVERE CONGESTION AND COUGH MAXIMUM STRENGTH [Suspect]
     Active Substance: DEXTROMETHORPHAN HYDROBROMIDE\GUAIFENESIN\PHENYLEPHRINE HYDROCHLORIDE
     Indication: COUGH
     Route: 048
     Dates: start: 20150122
  2. ELAVIL [Concomitant]
     Active Substance: AMITRIPTYLINE HYDROCHLORIDE
  3. UNSPECIFIED THYROID MEDICATION [Concomitant]
     Active Substance: UNSPECIFIED INGREDIENT
  4. MUCUS RELIEF SEVERE CONGESTION AND COUGH MAXIMUM STRENGTH [Suspect]
     Active Substance: DEXTROMETHORPHAN HYDROBROMIDE\GUAIFENESIN\PHENYLEPHRINE HYDROCHLORIDE
     Indication: PULMONARY CONGESTION
     Route: 048
     Dates: start: 20150122

REACTIONS (2)
  - Logorrhoea [None]
  - Musculoskeletal disorder [None]

NARRATIVE: CASE EVENT DATE: 20150122
